FAERS Safety Report 25706491 (Version 1)
Quarter: 2025Q3

REPORT INFORMATION
  Report Type: Spontaneous
  Country: US (occurrence: US)
  Receive Date: 20250820
  Receipt Date: 20250820
  Transmission Date: 20251021
  Serious: Yes (Hospitalization, Other)
  Sender: SANOFI AVENTIS
  Company Number: US-SA-2025SA247113

PATIENT
  Age: 78 Year
  Sex: Male

DRUGS (18)
  1. DUPIXENT [Suspect]
     Active Substance: DUPILUMAB
     Indication: Dermatitis atopic
  2. DUPIXENT [Suspect]
     Active Substance: DUPILUMAB
     Indication: Eczema
  3. ISOSORBIDE MONONITRATE [Suspect]
     Active Substance: ISOSORBIDE MONONITRATE
  4. AMLODIPINE [Concomitant]
     Active Substance: AMLODIPINE BESYLATE
  5. ASPIRIN [Concomitant]
     Active Substance: ASPIRIN
  6. ATORVASTATIN [Concomitant]
     Active Substance: ATORVASTATIN
  7. CARVEDILOL [Concomitant]
     Active Substance: CARVEDILOL
  8. DORZOLAMIDE [Concomitant]
     Active Substance: DORZOLAMIDE
  9. CLOBETASOL [Concomitant]
     Active Substance: CLOBETASOL
  10. FENOFIBRATE [Concomitant]
     Active Substance: FENOFIBRATE
  11. FUROSEMIDE [Concomitant]
     Active Substance: FUROSEMIDE
  12. HUMALOG [Concomitant]
     Active Substance: INSULIN LISPRO
  13. LATANOPROST [Concomitant]
     Active Substance: LATANOPROST
  14. LISINOPRIL [Concomitant]
     Active Substance: LISINOPRIL
  15. METFORMIN [Concomitant]
     Active Substance: METFORMIN HYDROCHLORIDE
  16. OMEPRAZOLE [Concomitant]
     Active Substance: OMEPRAZOLE
  17. TAMSULOSIN [Concomitant]
     Active Substance: TAMSULOSIN
  18. TOUJEO [Concomitant]
     Active Substance: INSULIN GLARGINE

REACTIONS (3)
  - Pneumonia [Recovered/Resolved]
  - Sepsis [Recovered/Resolved]
  - Hypotension [Unknown]

NARRATIVE: CASE EVENT DATE: 20250718
